FAERS Safety Report 4468432-3 (Version None)
Quarter: 2004Q4

REPORT INFORMATION
  Report Type: 
  Country: None (occurrence: None)
  Receive Date: 20041007
  Receipt Date: 20040927
  Transmission Date: 20050328
  Serious: Yes (Other)
  Sender: FDA-Public Use
  Company Number: PHFR2004GB03656

PATIENT
  Age: 55 Year
  Sex: Male

DRUGS (3)
  1. CLOZAPINE [Suspect]
     Dosage: 125MG/DAY
     Route: 048
     Dates: start: 20000125
  2. CLOZAPINE [Suspect]
     Dosage: 125 MG, QD
     Route: 048
     Dates: start: 20040629
  3. VALPROATE SODIUM [Concomitant]
     Indication: MOOD ALTERED
     Dosage: 600 MG, QD
     Route: 065

REACTIONS (3)
  - DYSPHEMIA [None]
  - NEUTROPHIL COUNT DECREASED [None]
  - WHITE BLOOD CELL COUNT DECREASED [None]
